FAERS Safety Report 6238621-6 (Version None)
Quarter: 2009Q2

REPORT INFORMATION
  Report Type: 
  Country: None (occurrence: None)
  Receive Date: 20090622
  Receipt Date: 20090610
  Transmission Date: 20091009
  Serious: Yes (Other)
  Sender: FDA-Public Use
  Company Number: IN-PFIZER INC-2009226476

PATIENT
  Age: 62 Year

DRUGS (1)
  1. CYKLOKAPRON [Suspect]
     Indication: KNEE ARTHROPLASTY
     Dosage: 1000 MG, 3X/DAY, EVERY 3 HOURS
     Route: 042
     Dates: start: 20090610, end: 20090610

REACTIONS (1)
  - CONVULSION [None]
